FAERS Safety Report 4720760-X (Version None)
Quarter: 2005Q3

REPORT INFORMATION
  Report Type: 
  Country: None (occurrence: None)
  Receive Date: 20050719
  Receipt Date: 20050706
  Transmission Date: 20060218
  Serious: No
  Sender: FDA-Public Use
  Company Number: US_0506119572

PATIENT
  Age: 57 Year
  Sex: Male

DRUGS (1)
  1. PROZAC [Suspect]

REACTIONS (5)
  - BENIGN PROSTATIC HYPERPLASIA [None]
  - DIABETES MELLITUS [None]
  - DRUG INEFFECTIVE [None]
  - HYPOTHYROIDISM [None]
  - SLEEP APNOEA SYNDROME [None]
